FAERS Safety Report 9679955 (Version 1)
Quarter: 2013Q4

REPORT INFORMATION
  Report Type: Spontaneous
  Country: JP (occurrence: JP)
  Receive Date: 20131110
  Receipt Date: 20131110
  Transmission Date: 20140711
  Serious: Yes (Death, Hospitalization, Other)
  Sender: FDA-Public Use
  Company Number: PHHY2013JP126649

PATIENT
  Age: 6 Year
  Sex: Male

DRUGS (2)
  1. CICLOSPORIN [Suspect]
     Indication: HISTIOCYTOSIS HAEMATOPHAGIC
  2. CICLOSPORIN [Suspect]
     Indication: OFF LABEL USE

REACTIONS (14)
  - Death [Fatal]
  - Multi-organ failure [Unknown]
  - Pulmonary haemorrhage [Unknown]
  - Histiocytosis haematophagic [Unknown]
  - Pyrexia [Unknown]
  - Haemorrhagic diathesis [Unknown]
  - Erythema [Unknown]
  - Shock [Unknown]
  - Altered state of consciousness [Unknown]
  - Liver disorder [Unknown]
  - Posterior reversible encephalopathy syndrome [Unknown]
  - Gastroenteritis [Unknown]
  - Mumps [Unknown]
  - Drug ineffective [Unknown]
